FAERS Safety Report 7459862-6 (Version None)
Quarter: 2011Q2

REPORT INFORMATION
  Report Type: 
  Country: None (occurrence: None)
  Receive Date: 20110505
  Receipt Date: 20110420
  Transmission Date: 20111010
  Serious: Yes (Other)
  Sender: FDA-Public Use
  Company Number: BR-US-EMD SERONO, INC.-7057716

PATIENT
  Sex: Female

DRUGS (5)
  1. IBUPROFEN [Concomitant]
  2. REBIF [Suspect]
     Indication: RELAPSING-REMITTING MULTIPLE SCLEROSIS
     Route: 058
     Dates: start: 20091101
  3. SIFROL [Concomitant]
  4. RIVOTRIL [Concomitant]
  5. ASSERT [Concomitant]

REACTIONS (2)
  - HELICOBACTER GASTRITIS [None]
  - VITAMIN B1 DEFICIENCY [None]
